FAERS Safety Report 6800730-8 (Version None)
Quarter: 2010Q2

REPORT INFORMATION
  Report Type: 
  Country: None (occurrence: None)
  Receive Date: 20100629
  Receipt Date: 20100624
  Transmission Date: 20101027
  Serious: Yes (Life-Threatening)
  Sender: FDA-Public Use
  Company Number: NL-B.I. PHARMACEUTICALS,INC./RIDGEFIELD-2010-DE-03437GD

PATIENT
  Age: 23 Year
  Sex: Female

DRUGS (2)
  1. CLONIDINE [Suspect]
     Indication: DRUG WITHDRAWAL SYNDROME
     Dosage: 120 MCG/H
  2. MIDAZOLAM HCL [Suspect]
     Indication: DRUG WITHDRAWAL SYNDROME
     Dosage: 50 MG/H

REACTIONS (2)
  - BRONCHIAL SECRETION RETENTION [None]
  - HYPOXIA [None]
